FAERS Safety Report 6598701-2 (Version None)
Quarter: 2010Q1

REPORT INFORMATION
  Report Type: 
  Country: None (occurrence: None)
  Receive Date: 20100224
  Receipt Date: 20100105
  Transmission Date: 20100710
  Serious: Yes (Death)
  Sender: FDA-Public Use
  Company Number: US-TYCO HEALTHCARE/MALLINCKRODT-T201000516

PATIENT
  Age: 48 Year
  Sex: Female

DRUGS (9)
  1. OXYCODONE [Suspect]
     Dosage: UNK
     Route: 048
  2. METHADOSE [Suspect]
     Dosage: UNK
     Route: 048
  3. QUETIAPINE [Suspect]
     Dosage: UNK
     Route: 048
  4. BENZODIAZEPINE [Suspect]
     Dosage: UNK
     Route: 048
  5. PROPOXYPHENE HCL [Suspect]
     Dosage: UNK
     Route: 048
  6. TRICYCLIC ANTIDEPRESSANTS [Suspect]
     Dosage: UNK
     Route: 048
  7. VARENICLINE [Suspect]
     Dosage: UNK
     Route: 048
  8. VENLAFAXINE [Suspect]
     Dosage: UNK
     Route: 048
  9. LITHIUM [Suspect]
     Dosage: UNK
     Route: 048

REACTIONS (1)
  - COMPLETED SUICIDE [None]
